FAERS Safety Report 9180566 (Version 1)
Quarter: 2013Q1

REPORT INFORMATION
  Report Type: Spontaneous
  Country: US (occurrence: US)
  Receive Date: 20130322
  Receipt Date: 20130322
  Transmission Date: 20140127
  Serious: Yes (Other)
  Sender: FDA-Public Use
  Company Number: US-JNJCP-30000151900

PATIENT
  Sex: Male
  Weight: 86 kg

DRUGS (10)
  1. AVEENO [Suspect]
     Indication: DRY SKIN PROPHYLAXIS
     Route: 061
     Dates: end: 20130306
  2. NO DRUG NAME [Concomitant]
  3. NO DRUG NAME [Concomitant]
  4. NO DRUG NAME [Concomitant]
  5. NO DRUG NAME [Concomitant]
  6. NO DRUG NAME [Concomitant]
  7. LUBRIDERM [Suspect]
     Indication: PRODUCT USED FOR UNKNOWN INDICATION
     Route: 061
  8. NO DRUG NAME [Concomitant]
  9. NO DRUG NAME [Concomitant]
  10. NO DRUG NAME [Concomitant]

REACTIONS (1)
  - Skin cancer [Not Recovered/Not Resolved]
